FAERS Safety Report 19058256 (Version 2)
Quarter: 2021Q1

REPORT INFORMATION
  Report Type: Report from Study
  Country: None (occurrence: US)
  Receive Date: 20210324
  Receipt Date: 20210330
  Transmission Date: 20210420
  Serious: Yes (Other)
  Sender: FDA-Public Use
  Company Number: US-ABBVIE-20K-163-3633089-00

PATIENT
  Sex: Female
  Weight: 67.19 kg

DRUGS (7)
  1. LEVOTHYROXINE. [Concomitant]
     Active Substance: LEVOTHYROXINE
     Indication: HYPOTHYROIDISM
  2. MARIJUANA [Concomitant]
     Active Substance: CANNABIS SATIVA SUBSP. INDICA TOP
     Indication: PAIN
  3. AZATHIOPRINE. [Concomitant]
     Active Substance: AZATHIOPRINE
     Indication: IMMUNE SYSTEM DISORDER
  4. HUMIRA [Suspect]
     Active Substance: ADALIMUMAB
     Route: 058
     Dates: start: 201910
  5. VITAMIN D [Concomitant]
     Active Substance: VITAMIN D NOS
     Indication: SUPPLEMENTATION THERAPY
  6. STELARA [Suspect]
     Active Substance: USTEKINUMAB
     Indication: PRODUCT USED FOR UNKNOWN INDICATION
     Route: 065
  7. HUMIRA [Suspect]
     Active Substance: ADALIMUMAB
     Indication: CROHN^S DISEASE
     Route: 058
     Dates: start: 2016, end: 2017

REACTIONS (16)
  - Ileal stenosis [Recovered/Resolved]
  - Stress [Unknown]
  - Crohn^s disease [Recovering/Resolving]
  - Abdominal distension [Recovered/Resolved]
  - Pain [Recovered/Resolved]
  - Palpitations [Not Recovered/Not Resolved]
  - Enteritis [Recovered/Resolved]
  - Fall [Recovered/Resolved with Sequelae]
  - Aphasia [Recovered/Resolved]
  - Enteritis [Recovered/Resolved]
  - Sensory processing disorder [Not Recovered/Not Resolved]
  - Nervous system disorder [Recovered/Resolved]
  - Ligament disorder [Recovered/Resolved]
  - Ileal stenosis [Recovered/Resolved]
  - Muscle spasms [Recovered/Resolved]
  - Adhesion [Not Recovered/Not Resolved]

NARRATIVE: CASE EVENT DATE: 2017
